FAERS Safety Report 10648797 (Version 3)
Quarter: 2014Q4

REPORT INFORMATION
  Report Type: Spontaneous
  Country: US (occurrence: US)
  Receive Date: 20141212
  Receipt Date: 20141226
  Transmission Date: 20150529
  Serious: Yes (Other)
  Sender: FDA-Public Use
  Company Number: US-AMGEN-USASP2014094825

PATIENT
  Age: 82 Year
  Sex: Female

DRUGS (4)
  1. NEURONTIN [Concomitant]
     Active Substance: GABAPENTIN
  2. PROLIA [Suspect]
     Active Substance: DENOSUMAB
     Indication: OSTEOPOROSIS
     Dosage: UNK, Q6MO
     Route: 065
     Dates: start: 20120807, end: 20140916
  3. PAXIL [Concomitant]
     Active Substance: PAROXETINE HYDROCHLORIDE
  4. MULTIVITAMIN                       /00097801/ [Concomitant]
     Active Substance: VITAMINS

REACTIONS (6)
  - Osteitis [Unknown]
  - Oral discomfort [Unknown]
  - Bone density decreased [Unknown]
  - Exostosis of jaw [Not Recovered/Not Resolved]
  - Asthenia [Unknown]
  - Gingival disorder [Unknown]

NARRATIVE: CASE EVENT DATE: 201411
